FAERS Safety Report 6421690-8 (Version None)
Quarter: 2009Q4

REPORT INFORMATION
  Report Type: 
  Country: None (occurrence: None)
  Receive Date: 20091029
  Receipt Date: 20091029
  Transmission Date: 20100525
  Serious: Yes (Other)
  Sender: FDA-Public Use
  Company Number: None

PATIENT
  Sex: Male
  Weight: 65.3 kg

DRUGS (1)
  1. OXCARBAZEPINE [Suspect]
     Indication: EPILEPSY
     Dosage: 300 MG TABS 3 QAM 3 QPM P.O.
     Route: 048
     Dates: start: 20091001

REACTIONS (2)
  - AURA [None]
  - PRODUCT QUALITY ISSUE [None]
